FAERS Safety Report 5828404-0 (Version None)
Quarter: 2008Q3

REPORT INFORMATION
  Report Type: 
  Country: None (occurrence: None)
  Receive Date: 20080729
  Receipt Date: 20080718
  Transmission Date: 20090109
  Serious: Yes (Hospitalization)
  Sender: FDA-Public Use
  Company Number: 2008SP014721

PATIENT
  Sex: Male

DRUGS (2)
  1. DESLORATADINE [Suspect]
     Indication: DRUG USE FOR UNKNOWN INDICATION
     Dosage: 5 MG; QD; PO
     Route: 048
     Dates: start: 20080713, end: 20080713
  2. GRAPEFRUIT [Concomitant]

REACTIONS (3)
  - SWELLING FACE [None]
  - SWOLLEN TONGUE [None]
  - VOMITING [None]
